FAERS Safety Report 19115002 (Version 2)
Quarter: 2021Q2

REPORT INFORMATION
  Report Type: Report from Study
  Country: None (occurrence: US)
  Receive Date: 20210408
  Receipt Date: 20210525
  Transmission Date: 20210717
  Serious: Yes (Other)
  Sender: FDA-Public Use
  Company Number: US-ABBVIE-20K-163-3319648-00

PATIENT
  Age: 72 Year
  Sex: Female
  Weight: 57.66 kg

DRUGS (5)
  1. HUMIRA [Suspect]
     Active Substance: ADALIMUMAB
     Indication: PSORIASIS
     Dosage: CITRATE FREE
     Route: 058
     Dates: start: 20171104, end: 202001
  2. COVID?19 VACCINE NOS. [Concomitant]
     Active Substance: COVID-19 VACCINE NOS
     Indication: COVID-19 IMMUNISATION
     Dosage: PFIZER
     Route: 030
     Dates: start: 20210204, end: 20210204
  3. COVID?19 VACCINE NOS. [Concomitant]
     Active Substance: COVID-19 VACCINE NOS
     Dosage: PFIZER
     Route: 030
     Dates: start: 20210225, end: 20210225
  4. HUMIRA [Suspect]
     Active Substance: ADALIMUMAB
     Dosage: CITRATE FREE
     Route: 058
     Dates: start: 2020
  5. LISINOPRIL AND HYDROCHLOROTHIAZIDE [Concomitant]
     Active Substance: HYDROCHLOROTHIAZIDE\LISINOPRIL
     Indication: BLOOD PRESSURE MEASUREMENT

REACTIONS (23)
  - Photopsia [Recovered/Resolved]
  - Headache [Recovered/Resolved]
  - Pain [Recovered/Resolved]
  - Retinal detachment [Recovered/Resolved]
  - Device breakage [Recovered/Resolved]
  - Appendicitis [Recovered/Resolved]
  - Weight decreased [Not Recovered/Not Resolved]
  - Tooth loss [Recovered/Resolved]
  - Dental caries [Not Recovered/Not Resolved]
  - Appendix disorder [Recovered/Resolved]
  - Herpes zoster [Recovered/Resolved]
  - General physical health deterioration [Recovering/Resolving]
  - Eye disorder [Recovered/Resolved]
  - Skin disorder [Recovered/Resolved]
  - Oral disorder [Recovered/Resolved]
  - Skin wrinkling [Not Recovered/Not Resolved]
  - Fall [Recovered/Resolved]
  - Pollakiuria [Recovered/Resolved]
  - Pain [Unknown]
  - Mass [Unknown]
  - Visual impairment [Recovered/Resolved]
  - Body height decreased [Unknown]
  - Bone disorder [Unknown]

NARRATIVE: CASE EVENT DATE: 2017
